FAERS Safety Report 9555332 (Version 1)
Quarter: 2013Q3

REPORT INFORMATION
  Report Type: Spontaneous
  Country: US (occurrence: US)
  Receive Date: 20130926
  Receipt Date: 20130926
  Transmission Date: 20140515
  Serious: No
  Sender: FDA-Public Use
  Company Number: US-BAYER-2013-116152

PATIENT
  Age: 98 Year
  Sex: Female
  Weight: 79.37 kg

DRUGS (1)
  1. ALEVE CAPLET [Suspect]
     Dosage: UNK
     Route: 048
     Dates: start: 2013, end: 20130920

REACTIONS (1)
  - Renal disorder [None]
